FAERS Safety Report 8887481 (Version 1)
Quarter: 2012Q4

REPORT INFORMATION
  Report Type: Spontaneous
  Country: US (occurrence: None)
  Receive Date: 20121101
  Receipt Date: 20121101
  Transmission Date: 20130627
  Serious: Yes (Life-Threatening)
  Sender: FDA-Public Use
  Company Number: None

PATIENT
  Age: 81 Year
  Sex: Male
  Weight: 65.9 kg

DRUGS (1)
  1. PRADAXA [Suspect]
     Indication: CABG
     Dosage: pradaxa 150 mg BID PO
     Route: 048
     Dates: end: 20120912

REACTIONS (1)
  - Gastrointestinal haemorrhage [None]
